FAERS Safety Report 7380764-8 (Version None)
Quarter: 2011Q1

REPORT INFORMATION
  Report Type: 
  Country: None (occurrence: None)
  Receive Date: 20110329
  Receipt Date: 20110323
  Transmission Date: 20110831
  Serious: Yes (Death)
  Sender: FDA-Public Use
  Company Number: A0896862A

PATIENT
  Age: 64 Year
  Sex: Male

DRUGS (2)
  1. AVANDIA [Suspect]
     Route: 048
     Dates: start: 20060206, end: 20070629
  2. AVANDAMET [Suspect]
     Dosage: 2MG UNKNOWN
     Route: 048
     Dates: start: 20030214, end: 20060205

REACTIONS (3)
  - CARDIAC FAILURE CONGESTIVE [None]
  - ARTERIOSCLEROSIS [None]
  - DEATH [None]
